FAERS Safety Report 20843468 (Version 6)
Quarter: 2022Q3

REPORT INFORMATION
  Report Type: Spontaneous
  Country: CA (occurrence: None)
  Receive Date: 20220518
  Receipt Date: 20220822
  Transmission Date: 20221026
  Serious: Yes (Hospitalization)
  Sender: FDA-Public Use
  Company Number: CA-Ultragenyx Pharmaceutical Inc.-CA-UGNX-22-00288

PATIENT
  Sex: Female

DRUGS (5)
  1. DOJOLVI [Suspect]
     Active Substance: TRIHEPTANOIN
     Indication: Very long-chain acyl-coenzyme A dehydrogenase deficiency
     Dosage: 8:30AM - 20ML, 12:00PM - 15ML, 3:30PM - 15ML, 8:00PM - 15ML, ACTIVITY DOSE OF 10ML
     Route: 048
     Dates: start: 20170518
  2. DOJOLVI [Suspect]
     Active Substance: TRIHEPTANOIN
     Route: 048
  3. DOJOLVI [Suspect]
     Active Substance: TRIHEPTANOIN
     Route: 048
  4. DOJOLVI [Suspect]
     Active Substance: TRIHEPTANOIN
     Route: 048
     Dates: start: 20170518
  5. CREATININE [Concomitant]
     Active Substance: CREATININE
     Indication: Product used for unknown indication
     Dates: start: 2020

REACTIONS (6)
  - Cardiomyopathy [Recovering/Resolving]
  - Ejection fraction decreased [Recovering/Resolving]
  - Cardiac failure [Recovering/Resolving]
  - Blood creatine phosphokinase increased [Unknown]
  - Vomiting [Unknown]
  - Hospitalisation [Unknown]

NARRATIVE: CASE EVENT DATE: 20220101
